FAERS Safety Report 5187811-2 (Version None)
Quarter: 2006Q4

REPORT INFORMATION
  Report Type: 
  Country: None (occurrence: None)
  Receive Date: 20061221
  Receipt Date: 20061214
  Transmission Date: 20070319
  Serious: Yes (Hospitalization)
  Sender: FDA-Public Use
  Company Number: AT-JNJFOC-20061103610

PATIENT
  Age: 55 Year
  Sex: Female
  Weight: 105 kg

DRUGS (8)
  1. REMICADE [Suspect]
     Indication: CROHN'S DISEASE
     Route: 042
  2. TOLVON [Concomitant]
     Indication: DEPRESSION
     Route: 048
  3. AZATHIOPRINE [Concomitant]
     Indication: CROHN'S DISEASE
     Route: 048
  4. CLAVERSAL [Concomitant]
     Indication: CROHN'S DISEASE
     Route: 048
  5. PREDNISOLONE [Concomitant]
     Indication: CROHN'S DISEASE
     Route: 048
  6. QUANTALAN [Concomitant]
     Indication: CROHN'S DISEASE
     Dosage: SACHET
     Route: 048
  7. SEROXAT [Concomitant]
     Indication: DEPRESSION
     Route: 048
  8. CANDESARTAN CILEXETIL [Concomitant]
     Indication: HYPERTENSION
     Route: 048

REACTIONS (1)
  - BREAST CANCER [None]
